APPROVED DRUG PRODUCT: DOCETAXEL
Active Ingredient: DOCETAXEL
Strength: 80MG/4ML (20MG/ML)
Dosage Form/Route: INJECTABLE;INJECTION
Application: N205934 | Product #002 | TE Code: AP
Applicant: SHILPA MEDICARE LTD
Approved: Dec 22, 2015 | RLD: Yes | RS: Yes | Type: RX

PATENTS:
Patent 9763880 | Expires: Sep 30, 2033
Patent 9763880 | Expires: Sep 30, 2033
Patent 9763880 | Expires: Sep 30, 2033
Patent 9763880 | Expires: Sep 30, 2033
Patent 9763880 | Expires: Sep 30, 2033
Patent 8940786 | Expires: Sep 30, 2033
Patent 10842770 | Expires: Aug 7, 2031
Patent 9763880 | Expires: Sep 30, 2033
Patent 9763880 | Expires: Sep 30, 2033
Patent 9308195 | Expires: Sep 30, 2033